FAERS Safety Report 18400852 (Version 1)
Quarter: 2020Q4

REPORT INFORMATION
  Report Type: Report from Study
  Country: None (occurrence: US)
  Receive Date: 20201020
  Receipt Date: 20201020
  Transmission Date: 20210114
  Serious: Yes (Hospitalization)
  Sender: FDA-Public Use
  Company Number: US-ABBVIE-20K-163-3457649-00

PATIENT
  Age: 71 Year
  Sex: Female

DRUGS (2)
  1. SYNTHROID [Suspect]
     Active Substance: LEVOTHYROXINE SODIUM
     Indication: HYPOTHYROIDISM
     Dosage: THERAPY START DATE MORE THAN 10 YEARS
     Route: 048
  2. GLIPIZIDE. [Concomitant]
     Active Substance: GLIPIZIDE
     Indication: BLOOD GLUCOSE INCREASED

REACTIONS (3)
  - Cervical vertebral fracture [Recovering/Resolving]
  - Product packaging difficult to open [Unknown]
  - Fall [Recovered/Resolved]

NARRATIVE: CASE EVENT DATE: 202002
